FAERS Safety Report 13817688 (Version 3)
Quarter: 2017Q3

REPORT INFORMATION
  Report Type: Spontaneous
  Country: GB (occurrence: GB)
  Receive Date: 20170731
  Receipt Date: 20170911
  Transmission Date: 20171127
  Serious: Yes (Other)
  Sender: FDA-Public Use
  Company Number: GB-MYLANLABS-2017M1044625

PATIENT
  Age: 76 Year
  Sex: Male

DRUGS (7)
  1. INDAPAMIDE. [Suspect]
     Active Substance: INDAPAMIDE
     Indication: PRODUCT USED FOR UNKNOWN INDICATION
     Dosage: 2.5 MG, 3XW
     Route: 048
  2. ESOMEPRAZOLE [Concomitant]
     Active Substance: ESOMEPRAZOLE
  3. PARACETAMOL [Concomitant]
     Active Substance: ACETAMINOPHEN
  4. DERMOL [Concomitant]
     Active Substance: BENZALKONIUM CHLORIDE\CHLORHEXIDINE HYDROCHLORIDE\ISOPROPYL MYRISTATE\PARAFFIN
     Indication: SKIN IRRITATION
     Dosage: UNK
  5. TABPHYN MR [Concomitant]
  6. INDAPAMIDE. [Suspect]
     Active Substance: INDAPAMIDE
     Dosage: 2.5 MG, UNK
     Route: 048
  7. SINEMET [Concomitant]
     Active Substance: CARBIDOPA\LEVODOPA
     Indication: FATIGUE

REACTIONS (17)
  - Seasonal allergy [Unknown]
  - Cough [Unknown]
  - Oropharyngeal pain [Unknown]
  - Fatigue [Unknown]
  - Diarrhoea [Unknown]
  - Blood pressure systolic increased [Unknown]
  - Insomnia [Unknown]
  - Hypersomnia [Unknown]
  - Headache [Unknown]
  - Chills [Unknown]
  - Rhinitis [Unknown]
  - Iron deficiency anaemia [Unknown]
  - Muscle spasms [Unknown]
  - Pruritus [Unknown]
  - Faeces discoloured [Unknown]
  - Anaemia [Unknown]
  - Skin irritation [Unknown]
